FAERS Safety Report 19613031 (Version 5)
Quarter: 2022Q1

REPORT INFORMATION
  Report Type: Report from Study
  Country: US (occurrence: US)
  Receive Date: 20210727
  Receipt Date: 20220216
  Transmission Date: 20220423
  Serious: Yes (Hospitalization, Other)
  Sender: FDA-Public Use
  Company Number: US-ABBVIE-21K-163-4006943-00

PATIENT
  Age: 58 Year
  Sex: Female

DRUGS (4)
  1. HUMIRA [Suspect]
     Active Substance: ADALIMUMAB
     Indication: Crohn^s disease
     Dosage: CITRATE FREE
     Route: 058
  2. PFIZER-BIONTECH COVID-19 VACCINE [Suspect]
     Active Substance: TOZINAMERAN
     Indication: COVID-19 immunisation
     Route: 030
     Dates: start: 20210803, end: 20210803
  3. PFIZER-BIONTECH COVID-19 VACCINE [Suspect]
     Active Substance: TOZINAMERAN
     Route: 030
     Dates: start: 20210827, end: 20210827
  4. MODERNA COVID-19 VACCINE [Concomitant]
     Active Substance: ELASOMERAN
     Indication: COVID-19 immunisation
     Route: 030

REACTIONS (24)
  - Rotator cuff syndrome [Not Recovered/Not Resolved]
  - Pancreatic disorder [Recovered/Resolved]
  - Exostosis [Not Recovered/Not Resolved]
  - Nodule [Recovered/Resolved]
  - Adjustment disorder with depressed mood [Recovered/Resolved]
  - Dizziness [Recovered/Resolved]
  - Eye irritation [Not Recovered/Not Resolved]
  - Pleurisy [Recovered/Resolved]
  - Sneezing [Not Recovered/Not Resolved]
  - Muscle strain [Not Recovered/Not Resolved]
  - Anxiety [Recovered/Resolved]
  - Cyst [Unknown]
  - SARS-CoV-2 test positive [Not Recovered/Not Resolved]
  - Arthritis [Recovered/Resolved]
  - Stress [Not Recovered/Not Resolved]
  - Poor quality sleep [Unknown]
  - Nasopharyngitis [Recovered/Resolved]
  - Hypersensitivity [Not Recovered/Not Resolved]
  - Pain [Recovered/Resolved]
  - Nausea [Recovered/Resolved]
  - Asthma [Unknown]
  - Crohn^s disease [Not Recovered/Not Resolved]
  - Pneumonia [Recovered/Resolved]
  - Pain [Not Recovered/Not Resolved]

NARRATIVE: CASE EVENT DATE: 20210801
